FAERS Safety Report 18943645 (Version 1)
Quarter: 2021Q1

REPORT INFORMATION
  Report Type: Spontaneous
  Country: US (occurrence: US)
  Receive Date: 20210226
  Receipt Date: 20210226
  Transmission Date: 20210420
  Serious: No
  Sender: FDA-Public Use
  Company Number: US-ALLERGAN-2039661US

PATIENT
  Age: 3 Year
  Sex: Female

DRUGS (1)
  1. SAVELLA [Suspect]
     Active Substance: MILNACIPRAN HYDROCHLORIDE
     Indication: MATERNAL EXPOSURE TIMING UNSPECIFIED
     Dosage: UNK
     Route: 064

REACTIONS (8)
  - Tonsillar hypertrophy [Not Recovered/Not Resolved]
  - Tendon disorder [Recovering/Resolving]
  - Dysphagia [Not Recovered/Not Resolved]
  - Toe walking [Not Recovered/Not Resolved]
  - Ear infection [Unknown]
  - Feeding disorder [Not Recovered/Not Resolved]
  - Ligament disorder [Recovering/Resolving]
  - Pregnancy [Unknown]

NARRATIVE: CASE EVENT DATE: 2018
